FAERS Safety Report 7822473-4 (Version None)
Quarter: 2011Q4

REPORT INFORMATION
  Report Type: 
  Country: None (occurrence: None)
  Receive Date: 20111018
  Receipt Date: 20110915
  Transmission Date: 20120403
  Serious: Yes (Other)
  Sender: FDA-Public Use
  Company Number: BR-US-EMD SERONO, INC.-7084708

PATIENT
  Sex: Female

DRUGS (9)
  1. CAPTOPRIL [Concomitant]
  2. INSULINE NPH [Concomitant]
  3. RANITIDINE [Concomitant]
  4. PROPRANOLOL [Concomitant]
  5. OSCAL D [Concomitant]
  6. REBIF [Suspect]
     Indication: RELAPSING-REMITTING MULTIPLE SCLEROSIS
  7. ATENOLOL [Concomitant]
  8. IMIPRAMINE [Concomitant]
  9. PREDNISONE [Suspect]
     Indication: PRODUCT USED FOR UNKNOWN INDICATION

REACTIONS (2)
  - RETINOPATHY [None]
  - DIABETES MELLITUS [None]
